FAERS Safety Report 6235385-7 (Version None)
Quarter: 2009Q2

REPORT INFORMATION
  Report Type: 
  Country: None (occurrence: None)
  Receive Date: 20090618
  Receipt Date: 20080909
  Transmission Date: 20091009
  Serious: No
  Sender: FDA-Public Use
  Company Number: US-ASTRAZENECA-2008UW18586

PATIENT
  Sex: Male

DRUGS (7)
  1. ENTOCORT EC [Suspect]
     Indication: CROHN'S DISEASE
     Route: 048
     Dates: start: 19980101, end: 20080825
  2. PENTASA [Concomitant]
  3. VITAMINS [Concomitant]
  4. METHOTREXATE [Concomitant]
  5. ATACAND [Concomitant]
  6. FOLIC ACID [Concomitant]
  7. LOMOTIL [Concomitant]

REACTIONS (6)
  - ASTHENIA [None]
  - FATIGUE [None]
  - GAIT DISTURBANCE [None]
  - MALAISE [None]
  - PAIN [None]
  - WITHDRAWAL SYNDROME [None]
